FAERS Safety Report 6381289-9 (Version None)
Quarter: 2009Q3

REPORT INFORMATION
  Report Type: 
  Country: None (occurrence: None)
  Receive Date: 20090923
  Receipt Date: 20090908
  Transmission Date: 20100115
  Serious: Yes (Hospitalization)
  Sender: FDA-Public Use
  Company Number: 2009AL005983

PATIENT
  Age: 66 Year
  Sex: Male

DRUGS (4)
  1. EPIRUBICIN HYDROCHLORIDE [Suspect]
     Indication: GASTROOESOPHAGEAL CANCER
  2. OXALIPLATIN [Concomitant]
  3. PANITUMUMAB [Concomitant]
  4. XELODA [Concomitant]

REACTIONS (3)
  - ARRHYTHMIA SUPRAVENTRICULAR [None]
  - INFECTION [None]
  - NODAL ARRHYTHMIA [None]
